FAERS Safety Report 6911230-9 (Version None)
Quarter: 2010Q3

REPORT INFORMATION
  Report Type: 
  Country: None (occurrence: None)
  Receive Date: 20100806
  Receipt Date: 20100726
  Transmission Date: 20110219
  Serious: Yes (Hospitalization, Other)
  Sender: FDA-Public Use
  Company Number: PHHY2010FR49261

PATIENT
  Age: 80 Year
  Sex: Female

DRUGS (1)
  1. FEMARA [Suspect]
     Indication: BREAST CANCER
     Dosage: 1 DF DAILY FOR 2 YEARS
     Dates: end: 20090101

REACTIONS (4)
  - BLINDNESS [None]
  - RETINAL VASCULAR THROMBOSIS [None]
  - VISION BLURRED [None]
  - VISUAL ACUITY REDUCED [None]
